FAERS Safety Report 4929675-5 (Version None)
Quarter: 2006Q1

REPORT INFORMATION
  Report Type: 
  Country: None (occurrence: None)
  Receive Date: 20060224
  Receipt Date: 20060216
  Transmission Date: 20060701
  Serious: Yes (Death)
  Sender: FDA-Public Use
  Company Number: C-06-0011

PATIENT
  Age: 3 Month
  Sex: Male

DRUGS (1)
  1. NYSTATIN [Suspect]
     Indication: CANDIDIASIS
     Dosage: 1CC THREE TIMES PER DAY
     Dates: start: 20060211

REACTIONS (4)
  - CONVULSION [None]
  - EYE ROLLING [None]
  - HYPOXIC ENCEPHALOPATHY [None]
  - MUSCULOSKELETAL STIFFNESS [None]
